FAERS Safety Report 9105362 (Version 2)
Quarter: 2013Q1

REPORT INFORMATION
  Report Type: Spontaneous
  Country: US (occurrence: US)
  Receive Date: 20130220
  Receipt Date: 20130226
  Transmission Date: 20140127
  Serious: Yes (Other)
  Sender: FDA-Public Use
  Company Number: US-JNJFOC-20130208368

PATIENT
  Sex: Female
  Weight: 64.41 kg

DRUGS (2)
  1. CYCLOBENZAPRINE HYDROCHLORIDE [Suspect]
     Indication: FIBROMYALGIA
     Route: 048
  2. CYCLOBENZAPRINE HYDROCHLORIDE [Suspect]
     Indication: FIBROMYALGIA
     Route: 048

REACTIONS (2)
  - Nightmare [Recovered/Resolved]
  - Sleep disorder [Not Recovered/Not Resolved]
